FAERS Safety Report 7338702-X (Version None)
Quarter: 2011Q1

REPORT INFORMATION
  Report Type: 
  Country: None (occurrence: None)
  Receive Date: 20110308
  Receipt Date: 20110302
  Transmission Date: 20110831
  Serious: Yes (Hospitalization, Congenital Anomaly)
  Sender: FDA-Public Use
  Company Number: A0916813A

PATIENT
  Sex: Male

DRUGS (1)
  1. PAXIL [Suspect]
     Dosage: 20MG PER DAY
     Route: 064
     Dates: start: 20020101

REACTIONS (12)
  - CONGENITAL GENITOURINARY ABNORMALITY [None]
  - MENINGOMYELOCELE [None]
  - MENINGITIS [None]
  - SPINA BIFIDA [None]
  - HIP DYSPLASIA [None]
  - CONGENITAL MUSCULOSKELETAL ANOMALY [None]
  - ARNOLD-CHIARI MALFORMATION [None]
  - HYDROCEPHALUS [None]
  - DRUG EXPOSURE DURING PREGNANCY [None]
  - FOETAL GROWTH RESTRICTION [None]
  - VESICOURETERIC REFLUX [None]
  - CONGENITAL KNEE DEFORMITY [None]
